FAERS Safety Report 10288042 (Version 2)
Quarter: 2016Q2

REPORT INFORMATION
  Report Type: Spontaneous
  Country: NO (occurrence: NO)
  Receive Date: 20140709
  Receipt Date: 20160620
  Transmission Date: 20160815
  Serious: Yes (Death, Other)
  Sender: FDA-Public Use
  Company Number: NO-WATSON-2014-14729

PATIENT
  Age: 65 Year
  Sex: Female

DRUGS (5)
  1. VINCRISTINE (UNKNOWN) [Suspect]
     Active Substance: VINCRISTINE
     Indication: PRECURSOR T-LYMPHOBLASTIC LYMPHOMA/LEUKAEMIA
     Dosage: 1.5 MG/M2, UNKNOWN;MAX 2.0 MG, ON DAYS 1,8,15,22,29
     Route: 042
     Dates: start: 1999, end: 2011
  2. PREDNISONE (UNKNOWN) [Suspect]
     Active Substance: PREDNISONE
     Indication: PRECURSOR T-LYMPHOBLASTIC LYMPHOMA/LEUKAEMIA
     Dosage: 40 MG/M2, UNKNOWN; ON DAY 1-29, TAPER TO DAY 35
     Route: 048
  3. DOXORUBICIN (UNKNOWN) [Suspect]
     Active Substance: DOXORUBICIN
     Indication: PRECURSOR T-LYMPHOBLASTIC LYMPHOMA/LEUKAEMIA
     Dosage: 30 MG/M2, UNKNOWN; ON DAY 8,15 AND 22
     Route: 042
  4. CYCLOPHOSPHAMIDE (UNKNOWN) [Suspect]
     Active Substance: CYCLOPHOSPHAMIDE
     Indication: PRECURSOR T-LYMPHOBLASTIC LYMPHOMA/LEUKAEMIA
     Dosage: 750 MG/M2, UNKNOWN; ON DAY 15,22 AND 29
     Route: 042
  5. L-ASPARAGINASE [Suspect]
     Active Substance: ASPARAGINASE
     Indication: PRECURSOR T-LYMPHOBLASTIC LYMPHOMA/LEUKAEMIA
     Dosage: 10000 IU, UNKNOWN; ON DAY 8-21
     Route: 042

REACTIONS (2)
  - Intracranial venous sinus thrombosis [Fatal]
  - Haematotoxicity [Unknown]
